FAERS Safety Report 16557597 (Version 1)
Quarter: 2019Q3

REPORT INFORMATION
  Report Type: Spontaneous
  Country: US (occurrence: US)
  Receive Date: 20190711
  Receipt Date: 20190711
  Transmission Date: 20191004
  Serious: No
  Sender: FDA-Public Use
  Company Number: US-ACLARIS THERAPEUTICS-2019US005757

PATIENT
  Age: 74 Year
  Sex: Male

DRUGS (2)
  1. ESKATA [Suspect]
     Active Substance: HYDROGEN PEROXIDE
     Indication: SEBORRHOEIC KERATOSIS
     Dosage: UNK
     Route: 061
     Dates: start: 20190402, end: 20190402
  2. ESKATA [Suspect]
     Active Substance: HYDROGEN PEROXIDE
     Dosage: UNK
     Route: 061
     Dates: start: 20190523, end: 20190523

REACTIONS (1)
  - Orbital oedema [Recovered/Resolved]

NARRATIVE: CASE EVENT DATE: 20190523
